FAERS Safety Report 11557507 (Version 2)
Quarter: 2015Q4

REPORT INFORMATION
  Report Type: Spontaneous
  Country: JP (occurrence: JP)
  Receive Date: 20150926
  Receipt Date: 20151012
  Transmission Date: 20160304
  Serious: Yes (Life-Threatening)
  Sender: FDA-Public Use
  Company Number: JP-ACCORD-033961

PATIENT
  Sex: Female

DRUGS (3)
  1. TEMOZOLOMIDE. [Suspect]
     Active Substance: TEMOZOLOMIDE
     Indication: BRAF GENE MUTATION
     Dosage: 150-200 MG/M2 OF TEMOZOLOMIDE FOR 5 DAYS
     Route: 048
  2. CARBOPLATIN. [Suspect]
     Active Substance: CARBOPLATIN
     Indication: BRAF GENE MUTATION
     Dosage: FOR THREE DAYS
  3. ETOPOSIDE. [Suspect]
     Active Substance: ETOPOSIDE
     Indication: BRAF GENE MUTATION
     Dosage: FOR THREE DAYS

REACTIONS (1)
  - No therapeutic response [Unknown]
